FAERS Safety Report 5871228-9 (Version None)
Quarter: 2008Q3

REPORT INFORMATION
  Report Type: 
  Country: None (occurrence: None)
  Receive Date: 20080902
  Receipt Date: 20080815
  Transmission Date: 20090109
  Serious: Yes (Hospitalization)
  Sender: FDA-Public Use
  Company Number: 94009

PATIENT
  Age: 7 Year
  Sex: Female

DRUGS (1)
  1. ACETAMINOPHEN [Suspect]
     Indication: PYREXIA
     Dosage: 75 MG/KG/ QD/ ORAL
     Route: 048

REACTIONS (14)
  - ACTIVATED PARTIAL THROMBOPLASTIN TIME PROLONGED [None]
  - ALANINE AMINOTRANSFERASE INCREASED [None]
  - AMMONIA INCREASED [None]
  - ASPARTATE AMINOTRANSFERASE INCREASED [None]
  - BLOOD CREATINE PHOSPHOKINASE INCREASED [None]
  - BLOOD LACTATE DEHYDROGENASE INCREASED [None]
  - CARNITINE DEFICIENCY [None]
  - COAGULOPATHY [None]
  - CONVULSION [None]
  - DRUG TOXICITY [None]
  - HEPATOTOXICITY [None]
  - PROTEIN TOTAL DECREASED [None]
  - PROTHROMBIN TIME PROLONGED [None]
  - RHABDOMYOLYSIS [None]
